FAERS Safety Report 5536801-6 (Version None)
Quarter: 2007Q4

REPORT INFORMATION
  Report Type: 
  Country: None (occurrence: None)
  Receive Date: 20071204
  Receipt Date: 20071123
  Transmission Date: 20080405
  Serious: Yes (Other)
  Sender: FDA-Public Use
  Company Number: 2007SP023603

PATIENT
  Sex: Female

DRUGS (1)
  1. NASONEX [Suspect]
     Indication: NASOPHARYNGITIS
     Dosage: NAS
     Route: 045

REACTIONS (3)
  - AGEUSIA [None]
  - ANOSMIA [None]
  - OTORRHOEA [None]
